FAERS Safety Report 11353152 (Version 1)
Quarter: 2015Q3

REPORT INFORMATION
  Report Type: Spontaneous
  Country: US (occurrence: US)
  Receive Date: 20150807
  Receipt Date: 20150807
  Transmission Date: 20151125
  Serious: No
  Sender: FDA-Public Use
  Company Number: US-JNJFOC-20150311137

PATIENT
  Age: 38 Year
  Sex: Male
  Weight: 75.75 kg

DRUGS (9)
  1. TAURINE [Concomitant]
     Active Substance: TAURINE
     Indication: CARDIOVASCULAR DISORDER
     Route: 065
  2. CITRULLINE [Concomitant]
     Active Substance: CITRULLINE
     Indication: CARDIOVASCULAR DISORDER
     Route: 065
  3. MENS ROGAINE EXTRA STRENGTH [Suspect]
     Active Substance: MINOXIDIL
     Indication: ALOPECIA
     Dosage: ABOUT HALF A CAP AMOUNT OR MORE
     Route: 061
     Dates: start: 20150201, end: 20150312
  4. MULTIVITAMINS [Concomitant]
     Active Substance: VITAMINS
     Indication: ROUTINE HEALTH MAINTENANCE
     Route: 065
  5. ARGININE [Concomitant]
     Active Substance: ARGININE
     Indication: CARDIOVASCULAR DISORDER
     Route: 065
  6. MENS ROGAINE EXTRA STRENGTH [Suspect]
     Active Substance: MINOXIDIL
     Route: 061
  7. N-ACETYLCYSTEINE [Concomitant]
     Active Substance: ACETYLCYSTEINE
     Indication: CARDIOVASCULAR DISORDER
     Route: 065
  8. PYCNOGENOL [Concomitant]
     Active Substance: DIETARY SUPPLEMENT
     Indication: CARDIOVASCULAR DISORDER
     Route: 065
  9. PROTEIN SHAKES [Concomitant]
     Route: 065

REACTIONS (3)
  - Product use issue [Unknown]
  - Overdose [Unknown]
  - Alopecia [Not Recovered/Not Resolved]

NARRATIVE: CASE EVENT DATE: 20150201
